FAERS Safety Report 20134888 (Version 3)
Quarter: 2022Q2

REPORT INFORMATION
  Report Type: Report from Study
  Country: US (occurrence: None)
  Receive Date: 20211201
  Receipt Date: 20220412
  Transmission Date: 20220720
  Serious: Yes (Hospitalization, Other)
  Sender: FDA-Public Use
  Company Number: US-ROCHE-2964282

PATIENT
  Age: 77 Year
  Sex: Male
  Weight: 115.35 kg

DRUGS (13)
  1. VENETOCLAX [Suspect]
     Active Substance: VENETOCLAX
     Indication: Chronic lymphocytic leukaemia
     Dosage: DAYS 1-7 CYCLE 3?ON 10/NOV/2021, HE RECEIVED LAST DOSE OF VENETOCLAX PRIOR TO ONSET OF SERIOUS ADVER
     Route: 048
     Dates: start: 20210324
  2. VENETOCLAX [Suspect]
     Active Substance: VENETOCLAX
     Dosage: DAYS 8-14, CYCLE 3
     Route: 048
  3. VENETOCLAX [Suspect]
     Active Substance: VENETOCLAX
     Dosage: DAYS 15- 21, CYCLE 3
     Route: 048
  4. VENETOCLAX [Suspect]
     Active Substance: VENETOCLAX
     Dosage: DAYS 22-28, CYCLE 3
     Route: 048
  5. VENETOCLAX [Suspect]
     Active Substance: VENETOCLAX
     Dosage: DAYS 1-28, CYCLES 4-14
     Route: 048
  6. VENETOCLAX [Suspect]
     Active Substance: VENETOCLAX
     Route: 065
     Dates: start: 20211223
  7. OBINUTUZUMAB [Suspect]
     Active Substance: OBINUTUZUMAB
     Indication: Chronic lymphocytic leukaemia
     Dosage: ON 11/AUG/2021, HE RECEIVED LAST DOSE OF OBINITUZUMAB PRIOR TO ONSET OF SERIOUS ADVERSE EVENT.?ON 08
     Route: 042
     Dates: start: 20210324
  8. OBINUTUZUMAB [Suspect]
     Active Substance: OBINUTUZUMAB
     Route: 042
  9. OBINUTUZUMAB [Suspect]
     Active Substance: OBINUTUZUMAB
     Dosage: LAST ADMININSTERED DATE: 15/JUN/2021 AND 11/AUG/2021
     Route: 042
  10. OBINUTUZUMAB [Suspect]
     Active Substance: OBINUTUZUMAB
     Route: 065
     Dates: start: 20210811
  11. IBRUTINIB [Suspect]
     Active Substance: IBRUTINIB
     Indication: Chronic lymphocytic leukaemia
     Dosage: FOR 15 CYCLES?ON 10/NOV/2021, HE RECEIVED LAST DOSE OF IBRUTINIB PRIOR TO ONSET OF SERIOUS ADVERSE E
     Route: 048
     Dates: start: 20210324
  12. IBRUTINIB [Suspect]
     Active Substance: IBRUTINIB
     Route: 065
     Dates: start: 20211223
  13. PREDNISONE [Concomitant]
     Active Substance: PREDNISONE
     Route: 065

REACTIONS (5)
  - Lymphocyte count decreased [Not Recovered/Not Resolved]
  - Muscular weakness [Not Recovered/Not Resolved]
  - Syncope [Not Recovered/Not Resolved]
  - Non-cardiac chest pain [Recovered/Resolved]
  - Pneumonia [Recovered/Resolved]

NARRATIVE: CASE EVENT DATE: 20210620
